FAERS Safety Report 6462411-2 (Version None)
Quarter: 2009Q4

REPORT INFORMATION
  Report Type: 
  Country: None (occurrence: None)
  Receive Date: 20091130
  Receipt Date: 20091121
  Transmission Date: 20100525
  Serious: Yes (Hospitalization, Other)
  Sender: FDA-Public Use
  Company Number: DE-BAYER-200940417GPV

PATIENT
  Age: 50 Year
  Sex: Female

DRUGS (7)
  1. CIMICIFUGA RACEMOSA [Suspect]
     Indication: MENOPAUSAL SYMPTOMS
  2. NIMODIPINE [Suspect]
     Indication: CEREBRAL VASOCONSTRICTION
     Route: 048
  3. STATIN [Concomitant]
     Indication: HYPERLIPIDAEMIA
  4. NIFEDIPINE [Concomitant]
     Indication: HYPERTENSION
  5. NON-STEROIDAL ANTI-INFLAMMATORY DRUGS [Concomitant]
     Indication: HEADACHE
  6. ANALGESICS [Concomitant]
     Indication: HEADACHE
  7. GABAPENTIN [Concomitant]
     Indication: NEURALGIA

REACTIONS (5)
  - AMNESTIC DISORDER [None]
  - CEREBRAL VASOCONSTRICTION [None]
  - CONFUSIONAL STATE [None]
  - DISORIENTATION [None]
  - MONOPARESIS [None]
